FAERS Safety Report 23845775 (Version 1)
Quarter: 2024Q2

REPORT INFORMATION
  Report Type: Spontaneous
  Country: US (occurrence: US)
  Receive Date: 20240512
  Receipt Date: 20240512
  Transmission Date: 20240716
  Serious: Yes (Hospitalization, Other)
  Sender: FDA-Public Use
  Company Number: US-DRL-USA-LIT/USA/24/0006599

PATIENT
  Age: 36 Year
  Sex: Female

DRUGS (3)
  1. DOXYCYCLINE [Suspect]
     Active Substance: DOXYCYCLINE
     Indication: Systemic scleroderma
  2. CLINDAMYCIN [Suspect]
     Active Substance: CLINDAMYCIN
     Indication: Systemic scleroderma
  3. AZITHROMYCIN [Suspect]
     Active Substance: AZITHROMYCIN
     Indication: Systemic scleroderma

REACTIONS (7)
  - Ventricular tachycardia [Unknown]
  - Supraventricular tachycardia [Unknown]
  - Disease progression [Unknown]
  - Interstitial lung disease [Unknown]
  - Oesophageal disorder [Unknown]
  - Pectus excavatum [Unknown]
  - Product use in unapproved indication [Unknown]
